FAERS Safety Report 8271620-1 (Version None)
Quarter: 2012Q2

REPORT INFORMATION
  Report Type: 
  Country: None (occurrence: None)
  Receive Date: 20120410
  Receipt Date: 20120402
  Transmission Date: 20120825
  Serious: Yes (Hospitalization)
  Sender: FDA-Public Use
  Company Number: US-GLAXOSMITHKLINE-A0970550A

PATIENT
  Age: 62 Year
  Sex: Female
  Weight: 66.7 kg

DRUGS (3)
  1. ZOFRAN [Suspect]
     Indication: PREMEDICATION
     Dosage: 8MG UNKNOWN
     Route: 042
     Dates: start: 20111214
  2. ZOFRAN [Suspect]
     Dosage: 16MG UNKNOWN
     Route: 042
     Dates: start: 20120201
  3. VELCADE [Suspect]
     Indication: MULTIPLE MYELOMA
     Dosage: 2.5MG CYCLIC
     Route: 042
     Dates: start: 20111109, end: 20120216

REACTIONS (5)
  - ILEUS PARALYTIC [None]
  - ABDOMINAL DISTENSION [None]
  - DIVERTICULUM INTESTINAL [None]
  - ABDOMINAL PAIN [None]
  - SMALL INTESTINAL OBSTRUCTION [None]
